FAERS Safety Report 9300791 (Version 2)
Quarter: 2013Q2

REPORT INFORMATION
  Report Type: Report from Study
  Country: CA (occurrence: CA)
  Receive Date: 20130521
  Receipt Date: 20130604
  Transmission Date: 20140414
  Serious: Yes (Hospitalization)
  Sender: FDA-Public Use
  Company Number: CA-JNJFOC-20120909432

PATIENT
  Age: 37 Year
  Sex: Female
  Weight: 92 kg

DRUGS (8)
  1. REMICADE [Suspect]
     Indication: CROHN^S DISEASE
     Route: 042
     Dates: start: 20101005
  2. TYLENOL [Suspect]
     Route: 048
  3. TYLENOL [Suspect]
     Indication: PREMEDICATION
     Route: 048
     Dates: start: 20101005
  4. SOLU-CORTEF [Suspect]
     Indication: PREMEDICATION
     Route: 042
     Dates: start: 20101005
  5. GRAVOL [Suspect]
     Indication: PREMEDICATION
     Route: 042
     Dates: start: 20101005
  6. BENADRYL [Suspect]
     Indication: PREMEDICATION
     Route: 042
     Dates: start: 20101005
  7. FOLIC ACID [Concomitant]
     Indication: PREGNANCY
     Route: 065
     Dates: start: 201210, end: 201304
  8. MATERNAL VITAMINS [Concomitant]
     Route: 048
     Dates: start: 201210, end: 201304

REACTIONS (4)
  - Uterine rupture [Unknown]
  - Crohn^s disease [Unknown]
  - Postpartum haemorrhage [Unknown]
  - Exposure during pregnancy [Recovered/Resolved]
